FAERS Safety Report 7365035-8 (Version None)
Quarter: 2011Q1

REPORT INFORMATION
  Report Type: 
  Country: None (occurrence: None)
  Receive Date: 20110311
  Receipt Date: 20110301
  Transmission Date: 20110831
  Serious: Yes (Other)
  Sender: FDA-Public Use
  Company Number: US-004634

PATIENT
  Sex: Female
  Weight: 68 kg

DRUGS (8)
  1. MENOPUR [Suspect]
     Indication: INFERTILITY
     Dosage: (150 IU QD SUBCUTANEOUS)
     Route: 058
     Dates: start: 20110121, end: 20110126
  2. MENOPUR [Suspect]
  3. PRASTERONE [Concomitant]
  4. FLONASE [Concomitant]
  5. WELLBUTRIN XL [Concomitant]
  6. FOLLISTIM [Suspect]
     Indication: INFERTILITY
     Dosage: (300 IU EVERY AM FOR 7 DAYS)
  7. SYNTHROID [Concomitant]
  8. TRAZODONE [Concomitant]

REACTIONS (4)
  - OESOPHAGEAL ULCER [None]
  - SENSATION OF FOREIGN BODY [None]
  - DYSPHAGIA [None]
  - OESOPHAGEAL PAIN [None]
